FAERS Safety Report 5142108-1 (Version None)
Quarter: 2006Q4

REPORT INFORMATION
  Report Type: 
  Country: None (occurrence: None)
  Receive Date: 20061102
  Receipt Date: 20030422
  Transmission Date: 20070319
  Serious: Yes (Hospitalization)
  Sender: FDA-Public Use
  Company Number: PHEH2003US03351

PATIENT
  Age: 71 Year
  Sex: Female

DRUGS (4)
  1. ESTRADERM [Suspect]
     Indication: HORMONE REPLACEMENT THERAPY
     Dosage: 0.05 MG/TWICE WEEKLY
     Dates: start: 19710101
  2. DIABETA [Concomitant]
  3. SYNTHROID [Concomitant]
  4. NORVASC [Concomitant]

REACTIONS (9)
  - BRONCHOPNEUMONIA [None]
  - CARDIAC MURMUR [None]
  - CHILLS [None]
  - COMA [None]
  - FEELING COLD [None]
  - HOT FLUSH [None]
  - MENOPAUSAL SYMPTOMS [None]
  - PERSONALITY CHANGE [None]
  - PYREXIA [None]
